FAERS Safety Report 9351310 (Version 2)
Quarter: 2013Q3

REPORT INFORMATION
  Report Type: Spontaneous
  Country: US (occurrence: US)
  Receive Date: 20130617
  Receipt Date: 20130823
  Transmission Date: 20140515
  Serious: Yes (Death, Disabling)
  Sender: FDA-Public Use
  Company Number: US-BAYER-2013-072717

PATIENT
  Age: 39 Year
  Sex: Female
  Weight: 90.7 kg

DRUGS (6)
  1. YASMIN [Suspect]
     Dosage: UNK
     Dates: start: 20110509, end: 20110812
  2. SERTRALINE [Concomitant]
     Dosage: 100 MG, BID
     Route: 048
  3. BUTALBITAL [Concomitant]
     Dosage: ORAL TAB, 1-2 4-6HRS AS NEEDED
  4. ZOLPIDEM [Concomitant]
     Route: 048
  5. PROBIOTICS [Concomitant]
     Route: 048
  6. DOXEPIN [Concomitant]

REACTIONS (11)
  - Pulmonary embolism [Fatal]
  - Pain [None]
  - Injury [Fatal]
  - General physical health deterioration [Fatal]
  - Anxiety [None]
  - Emotional distress [None]
  - Deformity [None]
  - Anhedonia [None]
  - Life expectancy shortened [None]
  - Depression [None]
  - Mental disorder [None]
